FAERS Safety Report 9914279 (Version 1)
Quarter: 2014Q1

REPORT INFORMATION
  Report Type: Spontaneous
  Country: US (occurrence: None)
  Receive Date: 20140219
  Receipt Date: 20140219
  Transmission Date: 20141002
  Serious: No
  Sender: FDA-Public Use
  Company Number: None

PATIENT
  Age: 77 Year
  Sex: Female

DRUGS (1)
  1. LEVOFLOXACIN 500MG WALGREENS [Suspect]
     Dosage: 7 PILLS
     Route: 048
     Dates: start: 20140210, end: 20140215

REACTIONS (2)
  - Tendonitis [None]
  - Tendon rupture [None]
